FAERS Safety Report 14934324 (Version 1)
Quarter: 2018Q2

REPORT INFORMATION
  Report Type: Spontaneous
  Country: US (occurrence: US)
  Receive Date: 20180505
  Receipt Date: 20180505
  Transmission Date: 20180711
  Serious: Yes (Other)
  Sender: FDA-Public Use
  Company Number: None

PATIENT
  Age: 63 Year
  Sex: Female
  Weight: 107.55 kg

DRUGS (6)
  1. VYTRON-C [Concomitant]
  2. TRAZODONE [Concomitant]
     Active Substance: TRAZODONE HYDROCHLORIDE
  3. XANAX [Concomitant]
     Active Substance: ALPRAZOLAM
  4. MYRBETRIQ [Concomitant]
     Active Substance: MIRABEGRON
  5. TRINTELLIX [Suspect]
     Active Substance: VORTIOXETINE HYDROBROMIDE
     Indication: MAJOR DEPRESSION
     Dosage: ?          QUANTITY:1 TABLET(S);?
     Route: 048
     Dates: start: 20180416, end: 20180505
  6. PROTONIX [Concomitant]
     Active Substance: PANTOPRAZOLE SODIUM

REACTIONS (7)
  - Irritability [None]
  - Distractibility [None]
  - Agitation [None]
  - Sleep deficit [None]
  - Confusional state [None]
  - Feeling abnormal [None]
  - Disease recurrence [None]

NARRATIVE: CASE EVENT DATE: 20180416
